FAERS Safety Report 17795960 (Version 1)
Quarter: 2020Q2

REPORT INFORMATION
  Report Type: Spontaneous
  Country: FR (occurrence: FR)
  Receive Date: 20200516
  Receipt Date: 20200516
  Transmission Date: 20200714
  Serious: Yes (Death, Other)
  Sender: FDA-Public Use
  Company Number: FR-MALLINCKRODT-T202002262

PATIENT
  Age: 69 Year
  Sex: Female
  Weight: 90 kg

DRUGS (7)
  1. LINEZOLIDE KABI [Suspect]
     Active Substance: LINEZOLID
     Indication: LUNG DISORDER
     Dosage: 1200 MILLIGRAM, QD
     Route: 042
     Dates: start: 20200327, end: 20200329
  2. CEFOTAXIME [Suspect]
     Active Substance: CEFOTAXIME SODIUM
     Indication: ANTIBIOTIC THERAPY
     Dosage: 6 GRAM, QD
     Route: 042
     Dates: start: 20200325, end: 20200329
  3. OFIRMEV [Suspect]
     Active Substance: ACETAMINOPHEN
     Indication: PYREXIA
     Dosage: 4 GRAM, QD
     Route: 042
     Dates: start: 20200325, end: 20200327
  4. AMIKACINE [Concomitant]
     Active Substance: AMIKACIN
     Indication: PRODUCT USED FOR UNKNOWN INDICATION
     Dosage: UNK
     Route: 065
  5. ROVAMYCINE [Suspect]
     Active Substance: SPIRAMYCIN
     Indication: CORONAVIRUS INFECTION
     Dosage: 4.5 MEGA-INTERNATIONAL UNIT, QD
     Route: 042
     Dates: start: 20200325, end: 20200329
  6. PLAQUENIL [Suspect]
     Active Substance: HYDROXYCHLOROQUINE SULFATE
     Indication: CORONAVIRUS INFECTION
     Dosage: 600 MILLIGRAM, QD
     Route: 048
     Dates: start: 20200325, end: 20200329
  7. MOVICOL PLAIN [Concomitant]
     Active Substance: POLYETHYLENE GLYCOL 3350\POTASSIUM CHLORIDE\SODIUM BICARBONATE\SODIUM CHLORIDE
     Indication: PRODUCT USED FOR UNKNOWN INDICATION
     Dosage: UNK
     Route: 065

REACTIONS (3)
  - Coronavirus infection [Fatal]
  - Diarrhoea [Recovering/Resolving]
  - Hepatocellular injury [Recovering/Resolving]

NARRATIVE: CASE EVENT DATE: 20200327
